FAERS Safety Report 8432620-1 (Version None)
Quarter: 2012Q2

REPORT INFORMATION
  Report Type: 
  Country: None (occurrence: None)
  Receive Date: 20120613
  Receipt Date: 20120605
  Transmission Date: 20120825
  Serious: Yes (Other)
  Sender: FDA-Public Use
  Company Number: US-ABBOTT-12P-163-0933483-00

PATIENT
  Sex: Female
  Weight: 91.254 kg

DRUGS (2)
  1. HUMIRA [Suspect]
     Indication: ECZEMA NUMMULAR
     Route: 058
     Dates: start: 20110201, end: 20111101
  2. HUMIRA [Suspect]
     Route: 058
     Dates: start: 20120101, end: 20120501

REACTIONS (7)
  - MUSCULAR WEAKNESS [None]
  - PAIN IN EXTREMITY [None]
  - PARAESTHESIA [None]
  - HYPOAESTHESIA [None]
  - OFF LABEL USE [None]
  - BLOOD CALCIUM DECREASED [None]
  - AREFLEXIA [None]
